FAERS Safety Report 6611174-6 (Version None)
Quarter: 2010Q1

REPORT INFORMATION
  Report Type: 
  Country: None (occurrence: None)
  Receive Date: 20100226
  Receipt Date: 20100226
  Transmission Date: 20100710
  Serious: No
  Sender: FDA-Public Use
  Company Number: None

PATIENT
  Sex: Female
  Weight: 68.2 kg

DRUGS (3)
  1. GAMUNEX [Suspect]
     Indication: MYASTHENIA GRAVIS
     Dosage: 70 GM Q MONTH IV
     Route: 042
     Dates: start: 20091025
  2. GAMUNEX [Suspect]
     Indication: MYASTHENIA GRAVIS
     Dosage: 70 GM Q MONTH IV
     Route: 042
     Dates: start: 20100124
  3. GAMUNEX [Suspect]

REACTIONS (6)
  - ERYTHEMA [None]
  - INFUSION RELATED REACTION [None]
  - MIGRAINE [None]
  - PHOTOSENSITIVITY REACTION [None]
  - RASH PRURITIC [None]
  - VOMITING [None]
